FAERS Safety Report 19188458 (Version 2)
Quarter: 2021Q2

REPORT INFORMATION
  Report Type: Spontaneous
  Country: US (occurrence: US)
  Receive Date: 20210427
  Receipt Date: 20210611
  Transmission Date: 20210717
  Serious: No
  Sender: FDA-Public Use
  Company Number: US-ASTRAZENECA-2021A272414

PATIENT
  Age: 791 Month
  Sex: Male
  Weight: 68 kg

DRUGS (1)
  1. SYMBICORT [Suspect]
     Active Substance: BUDESONIDE\FORMOTEROL FUMARATE DIHYDRATE
     Indication: CHRONIC OBSTRUCTIVE PULMONARY DISEASE
     Dosage: 160/4.5 MCG 2 PUFFS TWICE DAILY
     Route: 055

REACTIONS (12)
  - Body height decreased [Unknown]
  - Illness [Recovered/Resolved]
  - Dyspnoea [Unknown]
  - Suspected COVID-19 [Unknown]
  - Intentional device misuse [Unknown]
  - Product dose omission in error [Unknown]
  - Device use issue [Unknown]
  - Device malfunction [Unknown]
  - Drug delivery system issue [Unknown]
  - Productive cough [Recovered/Resolved]
  - Chronic obstructive pulmonary disease [Not Recovered/Not Resolved]
  - Wrong technique in device usage process [Unknown]

NARRATIVE: CASE EVENT DATE: 202001
